FAERS Safety Report 7607739-5 (Version None)
Quarter: 2011Q3

REPORT INFORMATION
  Report Type: 
  Country: None (occurrence: None)
  Receive Date: 20110713
  Receipt Date: 20110615
  Transmission Date: 20111222
  Serious: Yes (Death)
  Sender: FDA-Public Use
  Company Number: PHHY2011FR53907

PATIENT
  Sex: Male
  Weight: 62 kg

DRUGS (2)
  1. EPO [Concomitant]
     Dosage: UNK
     Dates: start: 20050225
  2. EXJADE [Suspect]
     Indication: MYELODYSPLASTIC SYNDROME
     Dosage: 500 MG
     Dates: start: 20080424

REACTIONS (1)
  - DEATH [None]
